FAERS Safety Report 21972729 (Version 21)
Quarter: 2025Q2

REPORT INFORMATION
  Report Type: Spontaneous
  Country: US (occurrence: US)
  Receive Date: 20230209
  Receipt Date: 20250513
  Transmission Date: 20250716
  Serious: Yes (Disabling, Other)
  Sender: PFIZER
  Company Number: US-PFIZER INC-PV202300025035

PATIENT
  Age: 70 Year
  Sex: Female
  Weight: 79.819 kg

DRUGS (6)
  1. PREMARIN [Suspect]
     Active Substance: ESTROGENS, CONJUGATED
     Indication: Hormone replacement therapy
     Dosage: 0.625MG TAKES ONCE A DAY
     Dates: start: 1987
  2. PREMARIN [Suspect]
     Active Substance: ESTROGENS, CONJUGATED
     Indication: Hysterectomy
  3. PREMARIN [Suspect]
     Active Substance: ESTROGENS, CONJUGATED
     Indication: Oestrogen deficiency
     Dosage: 0.625 MG, DAILY
     Route: 048
     Dates: end: 20231207
  4. PREMARIN [Suspect]
     Active Substance: ESTROGENS, CONJUGATED
     Dosage: 0.625 MG, DAILY
     Route: 048
     Dates: start: 20170512
  5. PREMARIN [Suspect]
     Active Substance: ESTROGENS, CONJUGATED
  6. PREMARIN [Suspect]
     Active Substance: ESTROGENS, CONJUGATED
     Dosage: 0.625 MG, 1X/DAY

REACTIONS (29)
  - Fibromyalgia [Not Recovered/Not Resolved]
  - Hyperhidrosis [Unknown]
  - Hot flush [Unknown]
  - Pruritus [Not Recovered/Not Resolved]
  - Scratch [Recovered/Resolved]
  - Contusion [Unknown]
  - Irritability [Unknown]
  - COVID-19 [Unknown]
  - Fatigue [Recovered/Resolved]
  - Nausea [Recovered/Resolved]
  - Cough [Recovered/Resolved]
  - Malaise [Recovered/Resolved]
  - Facial pain [Recovered/Resolved]
  - Gingival pain [Unknown]
  - Headache [Unknown]
  - Ear pain [Unknown]
  - Ear disorder [Unknown]
  - Vertigo [Unknown]
  - Insomnia [Unknown]
  - Eye pruritus [Not Recovered/Not Resolved]
  - Hormone level abnormal [Unknown]
  - Choking sensation [Unknown]
  - Emotional disorder [Not Recovered/Not Resolved]
  - Depressed mood [Not Recovered/Not Resolved]
  - Crying [Not Recovered/Not Resolved]
  - Stress [Unknown]
  - Scar [Unknown]
  - Withdrawal syndrome [Unknown]
  - Intentional product misuse [Unknown]

NARRATIVE: CASE EVENT DATE: 20010101
